FAERS Safety Report 13882069 (Version 1)
Quarter: 2017Q3

REPORT INFORMATION
  Report Type: Spontaneous
  Country: BR (occurrence: BR)
  Receive Date: 20170818
  Receipt Date: 20170818
  Transmission Date: 20171127
  Serious: Yes (Hospitalization)
  Sender: FDA-Public Use
  Company Number: BR-ELI_LILLY_AND_COMPANY-BR201708004550

PATIENT
  Age: 82 Year
  Sex: Female

DRUGS (8)
  1. PURAN [Concomitant]
     Active Substance: LEVOTHYROXINE SODIUM
  2. VITAMIN K                          /07504001/ [Concomitant]
  3. COLLAGEN [Concomitant]
     Active Substance: COLLAGEN
  4. MELATONINA [Concomitant]
  5. TRULICITY [Suspect]
     Active Substance: DULAGLUTIDE
     Indication: PRODUCT USED FOR UNKNOWN INDICATION
     Dosage: UNK, UNKNOWN
     Route: 065
  6. TRAYENTA DUO [Concomitant]
     Active Substance: LINAGLIPTIN\METFORMIN HYDROCHLORIDE
  7. OMEGA 3                            /01334101/ [Concomitant]
     Active Substance: OMEGA-3 FATTY ACIDS
  8. NPH                                /00030513/ [Concomitant]
     Dosage: 10 IU, EACH MORNING
     Route: 065

REACTIONS (1)
  - Acute kidney injury [Unknown]
